FAERS Safety Report 4769014-6 (Version None)
Quarter: 2005Q3

REPORT INFORMATION
  Report Type: 
  Country: None (occurrence: None)
  Receive Date: 20050909
  Receipt Date: 20050909
  Transmission Date: 20060218
  Serious: Yes (Death, Hospitalization)
  Sender: FDA-Public Use
  Company Number: None

PATIENT
  Sex: Male
  Weight: 26.5 kg

DRUGS (5)
  1. CYTARABINE [Suspect]
     Indication: ACUTE LYMPHOCYTIC LEUKAEMIA
     Dates: start: 20050726, end: 20050726
  2. DAUNORUBICIN HCL [Suspect]
     Dates: start: 20050726, end: 20050808
  3. METHOTREXATE [Suspect]
     Dates: start: 20050802, end: 20050802
  4. PEG-L ASPARAGINASE -H) [Suspect]
     Dates: start: 20050730, end: 20050730
  5. PREDNISONE [Suspect]
     Dates: start: 20050726, end: 20050811

REACTIONS (5)
  - CAECITIS [None]
  - CARDIO-RESPIRATORY ARREST [None]
  - GASTROINTESTINAL NECROSIS [None]
  - MALAISE [None]
  - NEUTROPENIC COLITIS [None]
